FAERS Safety Report 9639243 (Version 1)
Quarter: 2013Q4

REPORT INFORMATION
  Report Type: Spontaneous
  Country: US (occurrence: None)
  Receive Date: 20131009
  Receipt Date: 20131009
  Transmission Date: 20140711
  Serious: Yes (Other)
  Sender: FDA-Public Use
  Company Number: 2013038330

PATIENT
  Sex: Female
  Weight: 22.68 kg

DRUGS (11)
  1. PRIVIGEN [Suspect]
     Indication: SPINOCEREBELLAR DISORDER
     Dosage: 20 G 1X/4 WEEKS, 2-4  HOURS INTRAVENOUS  (NOT OTHERWISE SPECIFIED)
     Route: 042
  2. ACETAMINOPHEN(PARACETAMOL) [Concomitant]
  3. DIPHENHYDRAMINE(DIPHENHYDRAMINE) [Concomitant]
  4. HEPARIN(HEPARIN) [Concomitant]
  5. LIDOCAINE/PRILOCAINE [Concomitant]
  6. EPI-PEN(EPINEPHRINE HYDROCHLORIDE) [Concomitant]
  7. RANITIDINE(RANITIDINE) [Concomitant]
  8. FLOVEN(FLUTICASONE PROPIONATE) [Concomitant]
  9. ALBUTEROL (SALBUTAMOL) [Concomitant]
  10. SULFAMETHOXAZOLE(SULFAMETHOXAZOLE) [Concomitant]
  11. SODIUM CHLORIDE [Concomitant]

REACTIONS (2)
  - Pneumonia aspiration [None]
  - Gastrointestinal disorder [None]
